FAERS Safety Report 11131096 (Version 2)
Quarter: 2015Q2

REPORT INFORMATION
  Report Type: Spontaneous
  Country: US (occurrence: US)
  Receive Date: 20150522
  Receipt Date: 20150604
  Transmission Date: 20150821
  Serious: Yes (Hospitalization)
  Sender: FDA-Public Use
  Company Number: US-AMGEN-USASP2015048787

PATIENT
  Age: 76 Year
  Sex: Female

DRUGS (3)
  1. METHOTREXATE [Suspect]
     Active Substance: METHOTREXATE
     Indication: RHEUMATOID ARTHRITIS
     Dosage: 15 MG, QWK
     Route: 065
  2. ENBREL [Suspect]
     Active Substance: ETANERCEPT
     Indication: MYALGIA
     Dosage: 50 MG, QWK
     Route: 065
     Dates: start: 20141027, end: 201504
  3. ENBREL [Suspect]
     Active Substance: ETANERCEPT
     Indication: RHEUMATOID ARTHRITIS

REACTIONS (9)
  - Feeling abnormal [Unknown]
  - Oral pain [Unknown]
  - Malaise [Unknown]
  - Pyrexia [Unknown]
  - Drug ineffective [Unknown]
  - Diverticulitis [Recovered/Resolved]
  - Hypophagia [Unknown]
  - Arthralgia [Not Recovered/Not Resolved]
  - No therapeutic response [Unknown]

NARRATIVE: CASE EVENT DATE: 2015
